FAERS Safety Report 5396770-9 (Version None)
Quarter: 2007Q3

REPORT INFORMATION
  Report Type: 
  Country: None (occurrence: None)
  Receive Date: 20070725
  Receipt Date: 20070619
  Transmission Date: 20080115
  Serious: Yes (Hospitalization)
  Sender: FDA-Public Use
  Company Number: ES-ELI_LILLY_AND_COMPANY-ES200706004352

PATIENT
  Age: 73 Year
  Sex: Male
  Weight: 59 kg

DRUGS (7)
  1. LISPRO 25LIS75NPL [Suspect]
     Dosage: 10 IU, 2/D
     Dates: start: 20070616
  2. AAS [Concomitant]
  3. CARVEDILOL [Concomitant]
  4. PENTOXIFYLLINE [Concomitant]
  5. NITROGLYCERIN [Concomitant]
  6. METFORMIN HCL [Concomitant]
     Dosage: 850 UNK, UNK
  7. GLYBURIDE [Concomitant]

REACTIONS (3)
  - BRADYCARDIA [None]
  - CARDIO-RESPIRATORY ARREST [None]
  - HYPOGLYCAEMIA [None]
